FAERS Safety Report 13554933 (Version 1)
Quarter: 2017Q2

REPORT INFORMATION
  Report Type: Spontaneous
  Country: TR (occurrence: TR)
  Receive Date: 20170517
  Receipt Date: 20170517
  Transmission Date: 20170830
  Serious: Yes (Other)
  Sender: FDA-Public Use
  Company Number: TR-BAYER-2017-046391

PATIENT
  Age: 47 Year
  Sex: Male

DRUGS (2)
  1. BETACONNECT [Suspect]
     Active Substance: DEVICE
  2. BETAFERON [Suspect]
     Active Substance: INTERFERON BETA-1B
     Indication: MULTIPLE SCLEROSIS
     Dosage: UNK

REACTIONS (7)
  - Pyrexia [None]
  - Malaise [None]
  - Pain [Recovered/Resolved]
  - Pyrexia [None]
  - Multiple sclerosis [Recovered/Resolved]
  - Pain in extremity [Not Recovered/Not Resolved]
  - Balance disorder [Recovered/Resolved]

NARRATIVE: CASE EVENT DATE: 201703
